FAERS Safety Report 4875158-0 (Version None)
Quarter: 2006Q1

REPORT INFORMATION
  Report Type: 
  Country: None (occurrence: None)
  Receive Date: 20060104
  Receipt Date: 20051223
  Transmission Date: 20060701
  Serious: Yes (Hospitalization, Other)
  Sender: FDA-Public Use
  Company Number: 2005050290

PATIENT
  Age: 77 Year
  Sex: Female

DRUGS (11)
  1. CELEBREX [Suspect]
     Indication: ARTHRITIS
     Dosage: (200 MG)
     Dates: start: 20050120, end: 20050122
  2. FAMOTIDINE [Concomitant]
  3. HYDROCHLOROTHIAZIDE [Concomitant]
  4. TELMISARTAN (TELMISARTAN) [Concomitant]
  5. NEURONTIN [Concomitant]
  6. PROZAC [Concomitant]
  7. PREVACID [Concomitant]
  8. POTASSIUM (POTASSIUM) [Concomitant]
  9. ACETAMINOPHEN [Concomitant]
  10. AVELOX [Concomitant]
  11. VICODIN [Concomitant]

REACTIONS (8)
  - ARTERIOVENOUS MALFORMATION [None]
  - GASTROINTESTINAL HAEMORRHAGE [None]
  - HAEMATOCRIT DECREASED [None]
  - HAEMOGLOBIN DECREASED [None]
  - HYPONATRAEMIA [None]
  - HYPOXIA [None]
  - PNEUMONIA PRIMARY ATYPICAL [None]
  - ULCER [None]
